FAERS Safety Report 5247812-2 (Version None)
Quarter: 2007Q1

REPORT INFORMATION
  Report Type: 
  Country: None (occurrence: None)
  Receive Date: 20070227
  Receipt Date: 20070227
  Transmission Date: 20070707
  Serious: Yes (Hospitalization)
  Sender: FDA-Public Use
  Company Number: None

PATIENT
  Age: 69 Year
  Sex: Female

DRUGS (1)
  1. COLCHICINE 0.6 MG [Suspect]
     Indication: PERICARDITIS
     Dosage: COLCHICINE 0.6 MG PO
     Route: 048
     Dates: start: 20070114, end: 20070126

REACTIONS (1)
  - RENAL FAILURE ACUTE [None]
